FAERS Safety Report 12385993 (Version 1)
Quarter: 2016Q2

REPORT INFORMATION
  Report Type: Spontaneous
  Country: US (occurrence: US)
  Receive Date: 20160519
  Receipt Date: 20160519
  Transmission Date: 20160815
  Serious: No
  Sender: FDA-Public Use
  Company Number: US-ENDO PHARMACEUTICALS INC.-2016-001748

PATIENT
  Sex: Male
  Weight: 115.77 kg

DRUGS (6)
  1. BISOPROLOL [Concomitant]
     Active Substance: BISOPROLOL
     Indication: TACHYCARDIA
  2. LORAZEPAM TABLETS [Suspect]
     Active Substance: LORAZEPAM
     Indication: PANIC DISORDER
     Dosage: 1 MG TWICE DAILY AND 0.5 MG THREE TIMES DAILY
     Route: 048
     Dates: start: 1997
  3. DIAZEPAM 2MG [Concomitant]
     Active Substance: DIAZEPAM
     Indication: ANXIETY
  4. SEROQUEL [Concomitant]
     Active Substance: QUETIAPINE FUMARATE
     Indication: TIC
  5. DIAZEPAM 2MG [Concomitant]
     Active Substance: DIAZEPAM
     Indication: DRUG TOLERANCE
  6. PAXIL [Concomitant]
     Active Substance: PAROXETINE HYDROCHLORIDE
     Indication: PANIC DISORDER

REACTIONS (2)
  - Off label use [Not Recovered/Not Resolved]
  - Withdrawal syndrome [Unknown]

NARRATIVE: CASE EVENT DATE: 1997
